FAERS Safety Report 6646622-9 (Version None)
Quarter: 2010Q1

REPORT INFORMATION
  Report Type: 
  Country: None (occurrence: None)
  Receive Date: 20100323
  Receipt Date: 20100318
  Transmission Date: 20100710
  Serious: Yes (Hospitalization)
  Sender: FDA-Public Use
  Company Number: FR-WYE-H14199710

PATIENT
  Age: 83 Year
  Sex: Female

DRUGS (5)
  1. AMIODARONE [Interacting]
     Indication: ATRIAL FIBRILLATION
     Dosage: 200 MG TABLET (DOSE AND FREQUENCY UNSPECIFIED)
     Route: 048
     Dates: start: 20100201
  2. TAVANIC [Interacting]
     Indication: BRONCHOPNEUMONIA
     Dosage: 500 MG TABLET (DOSE AND FREQUENCY UNSPECIFIED)
     Route: 048
     Dates: start: 20100220
  3. PREVISCAN [Interacting]
     Indication: ATRIAL FIBRILLATION
     Route: 048
     Dates: start: 20100219, end: 20100222
  4. PREVISCAN [Interacting]
     Indication: SUBENDOCARDIAL ISCHAEMIA
  5. AMIODARONE HYDROCHLORIDE [Suspect]
     Indication: ATRIAL FIBRILLATION
     Dosage: UNKNOWN
     Route: 042
     Dates: start: 20100219, end: 20100201

REACTIONS (4)
  - DRUG INTERACTION [None]
  - HAEMORRHAGIC ANAEMIA [None]
  - INTERNATIONAL NORMALISED RATIO INCREASED [None]
  - MUSCLE HAEMORRHAGE [None]
